FAERS Safety Report 8608380-8 (Version None)
Quarter: 2012Q3

REPORT INFORMATION
  Report Type: 
  Country: None (occurrence: None)
  Receive Date: 20120821
  Receipt Date: 20120820
  Transmission Date: 20120928
  Serious: Yes (Death)
  Sender: FDA-Public Use
  Company Number: US-ROCHE-1048860

PATIENT
  Sex: Male
  Weight: 74.91 kg

DRUGS (1)
  1. ZELBORAF [Suspect]
     Indication: PRODUCT USED FOR UNKNOWN INDICATION
     Dates: end: 20120508

REACTIONS (3)
  - NAUSEA [None]
  - VOMITING [None]
  - METASTATIC MALIGNANT MELANOMA [None]
